FAERS Safety Report 4695115-7 (Version None)
Quarter: 2005Q2

REPORT INFORMATION
  Report Type: 
  Country: None (occurrence: None)
  Receive Date: 20050617
  Receipt Date: 20050610
  Transmission Date: 20051028
  Serious: Yes (Death)
  Sender: FDA-Public Use
  Company Number: R301251-PRTOST-J

PATIENT
  Age: 81 Year
  Sex: Male
  Weight: 53 kg

DRUGS (6)
  1. RABEPRAZOLE SODIUM [Suspect]
     Indication: REFLUX OESOPHAGITIS
     Dosage: 10 MG, 1 IN 1 D, ORAL
     Route: 048
     Dates: start: 20040818
  2. TAKEPRON (LANSOPRAZOLE) [Concomitant]
  3. ETODOLAC [Concomitant]
  4. MOHRUS TAPE (KETOPROFEN) [Concomitant]
  5. INDOMETHACIN [Concomitant]
  6. KELNAC (PLAUNOTOL) [Concomitant]

REACTIONS (6)
  - ACUTE MYOCARDIAL INFARCTION [None]
  - ARTHRALGIA [None]
  - CARDIAC FAILURE [None]
  - CARDIO-RESPIRATORY ARREST [None]
  - LOSS OF CONSCIOUSNESS [None]
  - PULMONARY OEDEMA [None]
